FAERS Safety Report 12617057 (Version 3)
Quarter: 2017Q3

REPORT INFORMATION
  Report Type: Spontaneous
  Country: JP (occurrence: JP)
  Receive Date: 20160803
  Receipt Date: 20170811
  Transmission Date: 20171127
  Serious: Yes (Death, Hospitalization)
  Sender: FDA-Public Use
  Company Number: JP-ACTELION-A-CH2016-140144

PATIENT
  Age: 5 Year
  Sex: Male

DRUGS (22)
  1. ARTIST [Concomitant]
     Active Substance: CARVEDILOL
  2. OPSUMIT [Suspect]
     Active Substance: MACITENTAN
     Dosage: 0.5 MG, BID
     Route: 048
     Dates: start: 20160328, end: 20160401
  3. POTASSIUM CHLORIDE. [Concomitant]
     Active Substance: POTASSIUM CHLORIDE
  4. DIGOSIN [Concomitant]
     Active Substance: DIGOXIN
  5. LASIX [Concomitant]
     Active Substance: FUROSEMIDE
  6. OXYGEN. [Concomitant]
     Active Substance: OXYGEN
  7. PULSMARIN A [Concomitant]
     Active Substance: AMBROXOL HYDROCHLORIDE
  8. ASPIRIN. [Concomitant]
     Active Substance: ASPIRIN
  9. BIO-THREE [Concomitant]
     Active Substance: HERBALS
  10. PIMOBENDAN [Concomitant]
     Active Substance: PIMOBENDAN
  11. THYRADIN [Concomitant]
     Active Substance: LEVOTHYROXINE
  12. LUPRAC [Concomitant]
     Active Substance: TORSEMIDE
  13. OPSUMIT [Suspect]
     Active Substance: MACITENTAN
     Indication: PULMONARY ARTERIAL HYPERTENSION
     Dosage: 0.2 MG, BID
     Route: 048
     Dates: start: 20160322, end: 20160323
  14. CARBOCISTEINE [Concomitant]
     Active Substance: CARBOCYSTEINE
  15. ADCIRCA [Concomitant]
     Active Substance: TADALAFIL
  16. KALGUT [Concomitant]
     Active Substance: DENOPAMINE
  17. ALDACTONE A [Concomitant]
     Active Substance: SPIRONOLACTONE
  18. OPSUMIT [Suspect]
     Active Substance: MACITENTAN
     Dosage: 0.35 MG, BID
     Route: 048
     Dates: start: 20160324, end: 20160327
  19. OPSUMIT [Suspect]
     Active Substance: MACITENTAN
     Dosage: 0.65 MG, BID
     Route: 048
     Dates: start: 20160402, end: 20160707
  20. RISPERIDONE. [Concomitant]
     Active Substance: RISPERIDONE
  21. SAMSCA [Concomitant]
     Active Substance: TOLVAPTAN
  22. TRICLORYL [Concomitant]
     Active Substance: TRICLOFOS SODIUM

REACTIONS (3)
  - Bradycardia [Fatal]
  - Cardiac failure [Fatal]
  - Circulatory collapse [Fatal]

NARRATIVE: CASE EVENT DATE: 20160707
